FAERS Safety Report 8484231 (Version 3)
Quarter: 2013Q2

REPORT INFORMATION
  Report Type: Spontaneous
  Country: CA (occurrence: CA)
  Receive Date: 20120330
  Receipt Date: 20130526
  Transmission Date: 20140414
  Serious: Yes (Other)
  Sender: FDA-Public Use
  Company Number: CA-US-EMD SERONO, INC.-7121633

PATIENT
  Sex: Male

DRUGS (2)
  1. REBIF [Suspect]
     Indication: RELAPSING-REMITTING MULTIPLE SCLEROSIS
     Route: 058
     Dates: start: 20021113, end: 201108
  2. REBIF [Suspect]
     Route: 058
     Dates: start: 20120514, end: 201206

REACTIONS (2)
  - Non-Hodgkin^s lymphoma [Unknown]
  - Neoplasm progression [Recovering/Resolving]
